FAERS Safety Report 4491087-9 (Version None)
Quarter: 2004Q4

REPORT INFORMATION
  Report Type: 
  Country: None (occurrence: None)
  Receive Date: 20041102
  Receipt Date: 20041026
  Transmission Date: 20050328
  Serious: Yes (Hospitalization, Other)
  Sender: FDA-Public Use
  Company Number: US-MERCK-0410USA03849

PATIENT
  Age: 41 Year
  Sex: Male

DRUGS (2)
  1. VIOXX [Suspect]
     Indication: JOINT DISLOCATION
     Route: 048
  2. VICODIN [Concomitant]
     Route: 065

REACTIONS (1)
  - DEEP VEIN THROMBOSIS [None]
